FAERS Safety Report 12780342 (Version 1)
Quarter: 2016Q3

REPORT INFORMATION
  Report Type: Spontaneous
  Country: FR (occurrence: FR)
  Receive Date: 20160926
  Receipt Date: 20160926
  Transmission Date: 20161109
  Serious: Yes (Other)
  Sender: FDA-Public Use
  Company Number: FR-PFIZER INC-2016432808

PATIENT
  Age: 65 Year
  Sex: Male

DRUGS (6)
  1. OXALIPLATIN HOSPIRA [Suspect]
     Active Substance: OXALIPLATIN
     Dosage: 100 MG/M2 OVER 2 HOURS ON DAY 2 OF EACH CYCLE
     Route: 042
  2. METHYLPREDNISOLONE MYLAN [Concomitant]
     Active Substance: METHYLPREDNISOLONE
     Indication: CHOLANGIOCARCINOMA
     Dosage: 60 MG, ON DAY 1 AND 2 OF EACH CYCLE
  3. OXALIPLATIN HOSPIRA [Suspect]
     Active Substance: OXALIPLATIN
     Dosage: 100 MG/M2 OVER 2 HOURS ON DAY 2 OF EACH CYCLE
     Route: 042
     Dates: start: 20160817, end: 20160817
  4. SETOFILM [Suspect]
     Active Substance: ONDANSETRON
     Dosage: 8 MG, ON DAY 2 OF EACH CYCLE
     Route: 048
     Dates: start: 20160817, end: 20160817
  5. SETOFILM [Suspect]
     Active Substance: ONDANSETRON
     Indication: PROPHYLAXIS OF NAUSEA AND VOMITING
     Dosage: 8 MG, ON DAY 2 OF EACH CYCLE
     Route: 048
  6. GEMCITABINE [Concomitant]
     Active Substance: GEMCITABINE\GEMCITABINE HYDROCHLORIDE
     Indication: CHOLANGIOCARCINOMA
     Dosage: 1000 MG/M2 OVER 30 MINUTES ON DAY 1 OF EACH CYCLE

REACTIONS (4)
  - Oxygen saturation decreased [Recovered/Resolved]
  - Chills [Recovered/Resolved]
  - Hyperhidrosis [Recovered/Resolved]
  - Hypersensitivity [Recovered/Resolved]

NARRATIVE: CASE EVENT DATE: 20160817
